FAERS Safety Report 18247813 (Version 2)
Quarter: 2020Q3

REPORT INFORMATION
  Report Type: Report from Study
  Country: ES (occurrence: ES)
  Receive Date: 20200909
  Receipt Date: 20200915
  Transmission Date: 20201103
  Serious: Yes (Death)
  Sender: FDA-Public Use
  Company Number: ES-PFIZER INC-2020346992

PATIENT
  Age: 54 Year
  Sex: Male
  Weight: 102 kg

DRUGS (2)
  1. SUNITINIB MALATE. [Suspect]
     Active Substance: SUNITINIB MALATE
     Dosage: 50 MG, 14 DAYS, ^OFF^
     Dates: start: 20180905, end: 20181226
  2. CLEXANE [Suspect]
     Active Substance: ENOXAPARIN SODIUM
     Dosage: UNK

REACTIONS (1)
  - Pulmonary embolism [Fatal]

NARRATIVE: CASE EVENT DATE: 20181226
